FAERS Safety Report 8314333-X (Version None)
Quarter: 2012Q1

REPORT INFORMATION
  Report Type: 
  Country: None (occurrence: None)
  Receive Date: 20120315
  Receipt Date: 20110401
  Transmission Date: 20120608
  Serious: Yes (Other)
  Sender: FDA-Public Use
  Company Number: PHHY2011US25096

PATIENT
  Age: 48 Year
  Sex: Female
  Weight: 83.4 kg

DRUGS (13)
  1. BUPROPION HCL [Concomitant]
  2. ALBUTEROL [Concomitant]
  3. ABILIFY [Concomitant]
  4. PROZAC [Concomitant]
  5. GILENYA [Suspect]
     Indication: MULTIPLE SCLEROSIS
     Dosage: 0.5 MG, DAILY, ORAL
     Route: 048
     Dates: start: 20110202
  6. ERGOCALCIFEROL [Concomitant]
  7. GABAPENTIN [Concomitant]
  8. ALBUTEROL + IPRATROPIUM (IPRATROPIUM, SALBUTAMOL) [Concomitant]
  9. FLONASE [Concomitant]
  10. NAPROXEN [Concomitant]
  11. MODAFINIL [Concomitant]
  12. FEXOFENADINE [Concomitant]
  13. OMEPRAZOLE [Concomitant]

REACTIONS (4)
  - BRONCHITIS [None]
  - COORDINATION ABNORMAL [None]
  - DIZZINESS [None]
  - HYPOAESTHESIA [None]
